FAERS Safety Report 4373646-7 (Version None)
Quarter: 2004Q1

REPORT INFORMATION
  Report Type: 
  Country: None (occurrence: None)
  Receive Date: 20040305
  Receipt Date: 20031202
  Transmission Date: 20041129
  Serious: Yes (Other)
  Sender: FDA-Public Use
  Company Number: 2003UW15904

PATIENT
  Age: 69 Year
  Sex: Female
  Weight: 61.2356 kg

DRUGS (4)
  1. CRESTOR [Suspect]
     Indication: BLOOD TRIGLYCERIDES INCREASED
     Dosage: 10 MG QD PO
     Route: 048
  2. MOBIC [Concomitant]
  3. ZESTRIL [Concomitant]
  4. SYNTHROID [Concomitant]

REACTIONS (3)
  - CONFUSIONAL STATE [None]
  - CONSTIPATION [None]
  - HEADACHE [None]
